FAERS Safety Report 20815342 (Version 1)
Quarter: 2022Q2

REPORT INFORMATION
  Report Type: Spontaneous
  Country: BE (occurrence: BE)
  Receive Date: 20220511
  Receipt Date: 20220511
  Transmission Date: 20220720
  Serious: Yes (Other)
  Sender: FDA-Public Use
  Company Number: BE-INSUD PHARMA-2205BE01803

PATIENT

DRUGS (5)
  1. ACYCLOVIR [Suspect]
     Active Substance: ACYCLOVIR
     Indication: Evidence based treatment
     Dosage: UNKNOWN
     Route: 065
  2. CEFTRIAXONE [Concomitant]
     Active Substance: CEFTRIAXONE
     Indication: Evidence based treatment
     Dosage: UNK
  3. AMOXICILLIN SODIUM [Concomitant]
     Active Substance: AMOXICILLIN SODIUM
     Indication: Evidence based treatment
     Dosage: UNK
  4. COVID-19 VACCINE MRNA (MRNA 1273) [Concomitant]
     Indication: Immunisation
     Dosage: SINGLE
  5. SUSTANON [TESTOSTERONE CAPRINOYLACETATE;TESTOSTERONE ISOCAPROATE;TESTO [Concomitant]
     Indication: Transgender hormonal therapy
     Dosage: INTRAMUSCULAR INJECTION EVERY 3 WEEKS
     Route: 030

REACTIONS (2)
  - Acute kidney injury [Recovered/Resolved]
  - Dehydration [Recovered/Resolved]
